FAERS Safety Report 6224595-0 (Version None)
Quarter: 2009Q2

REPORT INFORMATION
  Report Type: 
  Country: None (occurrence: None)
  Receive Date: 20090612
  Receipt Date: 20090324
  Transmission Date: 20091009
  Serious: No
  Sender: FDA-Public Use
  Company Number: US-ABBOTT-09P-163-0564428-00

PATIENT
  Sex: Female
  Weight: 64.014 kg

DRUGS (4)
  1. HUMIRA [Suspect]
     Indication: CROHN'S DISEASE
     Dosage: LOADING DOSE
     Route: 058
     Dates: start: 20090324, end: 20090324
  2. HUMIRA [Suspect]
     Route: 058
  3. AZACOL [Concomitant]
     Indication: CROHN'S DISEASE
  4. MEDROXY PROGESTEROL [Concomitant]
     Indication: CONTRACEPTION
     Route: 030
     Dates: start: 20081201

REACTIONS (3)
  - INCORRECT DOSE ADMINISTERED [None]
  - INJECTION SITE HAEMORRHAGE [None]
  - INJECTION SITE IRRITATION [None]
